FAERS Safety Report 5266756-3 (Version None)
Quarter: 2007Q1

REPORT INFORMATION
  Report Type: 
  Country: None (occurrence: None)
  Receive Date: 20070312
  Receipt Date: 20070307
  Transmission Date: 20070707
  Serious: Yes (Hospitalization, Disabling)
  Sender: FDA-Public Use
  Company Number: SP01029

PATIENT
  Age: 57 Year
  Sex: Female
  Weight: 59.4212 kg

DRUGS (2)
  1. OSMOPREP [Suspect]
     Indication: COLONOSCOPY
     Dosage: UNK (SEE TEXT), ORAL
     Route: 048
     Dates: start: 20061112, end: 20061112
  2. VITAMINS [Concomitant]

REACTIONS (15)
  - ACIDOSIS [None]
  - AGGRESSION [None]
  - AGITATION [None]
  - CONFUSIONAL STATE [None]
  - GRAND MAL CONVULSION [None]
  - HEADACHE [None]
  - HYPONATRAEMIA [None]
  - LETHARGY [None]
  - MENTAL STATUS CHANGES [None]
  - NECK PAIN [None]
  - PALLOR [None]
  - POSTICTAL STATE [None]
  - RENAL FAILURE [None]
  - SOMNOLENCE [None]
  - URINARY RETENTION [None]
